FAERS Safety Report 11822074 (Version 2)
Quarter: 2016Q4

REPORT INFORMATION
  Report Type: Spontaneous
  Country: US (occurrence: US)
  Receive Date: 20151210
  Receipt Date: 20161017
  Transmission Date: 20170206
  Serious: Yes (Other)
  Sender: FDA-Public Use
  Company Number: US-JNJFOC-20150515239

PATIENT
  Age: 69 Year
  Sex: Male

DRUGS (4)
  1. IMBRUVICA [Suspect]
     Active Substance: IBRUTINIB
     Indication: CHRONIC LYMPHOCYTIC LEUKAEMIA
     Route: 048
     Dates: start: 20140904
  2. ALLOPURINOL. [Concomitant]
     Active Substance: ALLOPURINOL
  3. PERCOCET [Concomitant]
     Active Substance: ACETAMINOPHEN\OXYCODONE HYDROCHLORIDE
  4. OXYCODONE [Concomitant]
     Active Substance: OXYCODONE

REACTIONS (9)
  - Off label use [Not Recovered/Not Resolved]
  - Arthralgia [Unknown]
  - Gout [Unknown]
  - Pain [Unknown]
  - Tumour lysis syndrome [Unknown]
  - Acne [Unknown]
  - Dry skin [Not Recovered/Not Resolved]
  - Myalgia [Unknown]
  - Incorrect dose administered [Not Recovered/Not Resolved]

NARRATIVE: CASE EVENT DATE: 2014
